FAERS Safety Report 6737353-5 (Version None)
Quarter: 2010Q2

REPORT INFORMATION
  Report Type: 
  Country: None (occurrence: None)
  Receive Date: 20100521
  Receipt Date: 20100521
  Transmission Date: 20101027
  Serious: No
  Sender: FDA-Public Use
  Company Number: None

PATIENT
  Age: 24 Year
  Sex: Female
  Weight: 57.8336 kg

DRUGS (2)
  1. TOPAMAX [Suspect]
     Dosage: 1 TAB PO BID PO
     Route: 048
     Dates: start: 20030101
  2. MULTI-VITAMIN [Concomitant]

REACTIONS (3)
  - DIZZINESS [None]
  - FEELING ABNORMAL [None]
  - PRODUCT SUBSTITUTION ISSUE [None]
